FAERS Safety Report 7985275-4 (Version None)
Quarter: 2011Q4

REPORT INFORMATION
  Report Type: 
  Country: None (occurrence: None)
  Receive Date: 20111214
  Receipt Date: 20111129
  Transmission Date: 20120403
  Serious: Yes (Death, Other)
  Sender: FDA-Public Use
  Company Number: 2011SP010674

PATIENT
  Age: 67 Year
  Sex: Male
  Weight: 83 kg

DRUGS (2)
  1. TEMODAL [Suspect]
     Indication: GLIOBLASTOMA
     Dosage: 160 MG;QD;PO
     Route: 048
     Dates: start: 20071206, end: 20080109
  2. DEXAMETHASONE [Concomitant]

REACTIONS (1)
  - THROMBOCYTOPENIA [None]
